FAERS Safety Report 5423071-2 (Version None)
Quarter: 2007Q3

REPORT INFORMATION
  Report Type: 
  Country: None (occurrence: None)
  Receive Date: 20070821
  Receipt Date: 20070810
  Transmission Date: 20080115
  Serious: Yes (Hospitalization)
  Sender: FDA-Public Use
  Company Number: 430065K07USA

PATIENT
  Age: 46 Year
  Sex: Female

DRUGS (3)
  1. NOVANTRONE [Suspect]
     Indication: MULTIPLE SCLEROSIS
     Dosage: SEE IMAGE
     Route: 042
     Dates: start: 20030101, end: 20040101
  2. NOVANTRONE [Suspect]
     Indication: MULTIPLE SCLEROSIS
     Dosage: SEE IMAGE
     Route: 042
     Dates: start: 20060101, end: 20060101
  3. ANTIBIOTIC (ANTIBIOTICS) [Suspect]

REACTIONS (4)
  - CLOSTRIDIAL INFECTION [None]
  - DISBACTERIOSIS [None]
  - PATHOGEN RESISTANCE [None]
  - PNEUMONIA [None]
